FAERS Safety Report 8365632 (Version 3)
Quarter: 2013Q3

REPORT INFORMATION
  Report Type: Report from Study
  Country: US (occurrence: US)
  Receive Date: 20120128
  Receipt Date: 20130821
  Transmission Date: 20140515
  Serious: Yes (Disabling, Other)
  Sender: FDA-Public Use
  Company Number: US-ABBOTT-11P-163-0712580-00

PATIENT
  Age: 46 Year
  Sex: Male

DRUGS (5)
  1. HUMIRA 40 MG/0.8 ML PEN [Suspect]
     Indication: RHEUMATOID ARTHRITIS
     Dates: start: 20100713, end: 20100827
  2. HUMIRA 40 MG/0.8 ML PEN [Suspect]
  3. PREDNISONE [Concomitant]
     Indication: PRODUCT USED FOR UNKNOWN INDICATION
  4. NAPROXEN [Concomitant]
     Indication: PRODUCT USED FOR UNKNOWN INDICATION
  5. PLAQUENIL [Concomitant]
     Indication: PRODUCT USED FOR UNKNOWN INDICATION

REACTIONS (18)
  - Neuropathy peripheral [Recovering/Resolving]
  - Nerve injury [Recovering/Resolving]
  - Neuralgia [Recovering/Resolving]
  - Influenza like illness [Unknown]
  - Pain [Unknown]
  - Fatigue [Unknown]
  - Oedema peripheral [Unknown]
  - Paraesthesia [Unknown]
  - Condition aggravated [Unknown]
  - Gait disturbance [Unknown]
  - Pain [Unknown]
  - Muscle spasms [Unknown]
  - Toxic neuropathy [Unknown]
  - Pain [Unknown]
  - Fall [Unknown]
  - Quality of life decreased [Unknown]
  - Oedema [Recovering/Resolving]
  - Arthralgia [Recovering/Resolving]
